FAERS Safety Report 13153415 (Version 1)
Quarter: 2017Q1

REPORT INFORMATION
  Report Type: Spontaneous
  Country: US (occurrence: US)
  Receive Date: 20170125
  Receipt Date: 20170125
  Transmission Date: 20170428
  Serious: Yes (Other)
  Sender: FDA-Public Use
  Company Number: None

PATIENT
  Age: 73 Year
  Sex: Male
  Weight: 77.11 kg

DRUGS (1)
  1. ZIOPTAN [Suspect]
     Active Substance: TAFLUPROST
     Indication: NORMAL TENSION GLAUCOMA
     Dosage: ONE DROP QHS TOPICAL IN THE EYE
     Route: 047
     Dates: start: 20161222

REACTIONS (1)
  - Retinal pigment epithelial tear [None]

NARRATIVE: CASE EVENT DATE: 20170103
